FAERS Safety Report 7524037-9 (Version None)
Quarter: 2011Q2

REPORT INFORMATION
  Report Type: 
  Country: None (occurrence: None)
  Receive Date: 20110604
  Receipt Date: 20110520
  Transmission Date: 20111010
  Serious: Yes (Other)
  Sender: FDA-Public Use
  Company Number: JP-WATSON-2011-07009

PATIENT
  Age: 51 Year
  Sex: Male

DRUGS (3)
  1. CISPLATIN [Suspect]
     Indication: OESOPHAGEAL CARCINOMA
     Dosage: 60 MG/M2, DAILY ON DAY 1
     Route: 042
  2. DOCETAXEL [Suspect]
     Indication: OESOPHAGEAL CARCINOMA
     Dosage: 60 MG/M2, DAILY ON DAY 1
     Route: 042
  3. FLUOROURACIL [Suspect]
     Indication: OESOPHAGEAL CARCINOMA
     Dosage: 800 MG/M2, ON DAYS 1-15
     Route: 042

REACTIONS (4)
  - DECREASED APPETITE [None]
  - ALOPECIA [None]
  - CONSTIPATION [None]
  - NEUTROPENIA [None]
